FAERS Safety Report 7638821-4 (Version None)
Quarter: 2011Q3

REPORT INFORMATION
  Report Type: 
  Country: None (occurrence: None)
  Receive Date: 20110727
  Receipt Date: 20110725
  Transmission Date: 20111222
  Serious: Yes (Death)
  Sender: FDA-Public Use
  Company Number: CA-ROCHE-791779

PATIENT
  Age: 23 Year
  Sex: Male

DRUGS (6)
  1. LORAZEPAM [Suspect]
     Route: 048
  2. CLONAZEPAM [Suspect]
     Route: 048
  3. COCAINE [Suspect]
     Route: 065
  4. HYDROXYZINE HCL [Suspect]
     Route: 048
  5. OXYCODONE HCL [Suspect]
     Route: 065
  6. DIAZEPAM [Suspect]
     Route: 048

REACTIONS (2)
  - SUBSTANCE ABUSE [None]
  - TOXICITY TO VARIOUS AGENTS [None]
